FAERS Safety Report 7629084-4 (Version None)
Quarter: 2011Q3

REPORT INFORMATION
  Report Type: 
  Country: None (occurrence: None)
  Receive Date: 20110722
  Receipt Date: 20110722
  Transmission Date: 20111222
  Serious: Yes (Hospitalization)
  Sender: FDA-Public Use
  Company Number: None

PATIENT
  Age: 66 Year
  Sex: Male
  Weight: 82.1 kg

DRUGS (2)
  1. TOPOTECAN HYDROCHLORIDE [Suspect]
     Indication: NEUROENDOCRINE CARCINOMA
     Dosage: 29 MG
     Route: 041
     Dates: start: 20110711, end: 20110711
  2. TOPOTECAN HYDROCHLORIDE [Suspect]
     Indication: LUNG NEOPLASM MALIGNANT
     Dosage: 29 MG
     Route: 041
     Dates: start: 20110711, end: 20110711

REACTIONS (2)
  - MEDICATION ERROR [None]
  - INCORRECT DOSE ADMINISTERED [None]
